FAERS Safety Report 4375781-6 (Version None)
Quarter: 2004Q2

REPORT INFORMATION
  Report Type: 
  Country: None (occurrence: None)
  Receive Date: 20040609
  Receipt Date: 20040609
  Transmission Date: 20050107
  Serious: Yes (Hospitalization)
  Sender: FDA-Public Use
  Company Number: None

PATIENT
  Sex: Female

DRUGS (7)
  1. THALIDOMIDE [Suspect]
     Indication: MULTIPLE MYELOMA
     Dosage: 200 MG PO Q HS
     Route: 048
     Dates: start: 20030101
  2. CELEBREX [Concomitant]
  3. EPOGEN [Concomitant]
  4. PERCOCET [Concomitant]
  5. PROTONIX [Concomitant]
  6. FOLIC ACID [Concomitant]
  7. ZOLOFT [Concomitant]

REACTIONS (7)
  - COAGULOPATHY [None]
  - DEEP VEIN THROMBOSIS [None]
  - FATIGUE [None]
  - FIBROSIS [None]
  - HEADACHE [None]
  - LUNG INFILTRATION [None]
  - PLEURAL EFFUSION [None]
